FAERS Safety Report 5273121-1 (Version None)
Quarter: 2007Q1

REPORT INFORMATION
  Report Type: 
  Country: None (occurrence: None)
  Receive Date: 20070322
  Receipt Date: 20070312
  Transmission Date: 20070707
  Serious: Yes (Other)
  Sender: FDA-Public Use
  Company Number: US-PFIZER INC-2007010630

PATIENT
  Age: 32 Year
  Sex: Female
  Weight: 61.2 kg

DRUGS (2)
  1. CHANTIX [Suspect]
     Indication: SMOKING CESSATION THERAPY
  2. LEXAPRO [Interacting]
     Indication: STRESS

REACTIONS (14)
  - BODY TEMPERATURE DECREASED [None]
  - COLD SWEAT [None]
  - DIZZINESS [None]
  - DRUG INTERACTION [None]
  - FEELING HOT [None]
  - HEART RATE INCREASED [None]
  - HOT FLUSH [None]
  - HYPERHIDROSIS [None]
  - HYPOTENSION [None]
  - NAUSEA [None]
  - PALPITATIONS [None]
  - SEROTONIN SYNDROME [None]
  - STRESS [None]
  - VOMITING [None]
